FAERS Safety Report 8718969 (Version 2)
Quarter: 2013Q4

REPORT INFORMATION
  Report Type: Spontaneous
  Country: US (occurrence: US)
  Receive Date: 20120811
  Receipt Date: 20131101
  Transmission Date: 20140711
  Serious: No
  Sender: FDA-Public Use
  Company Number: US-009507513-1208USA003145

PATIENT
  Age: 20 Year
  Sex: Female
  Weight: 116.1 kg

DRUGS (1)
  1. NUVARING [Suspect]
     Indication: CONTRACEPTION
     Dosage: UNK
     Route: 067
     Dates: start: 20120722

REACTIONS (2)
  - Menorrhagia [Unknown]
  - Dysmenorrhoea [Unknown]
